FAERS Safety Report 16576609 (Version 1)
Quarter: 2019Q3

REPORT INFORMATION
  Report Type: Spontaneous
  Country: CA (occurrence: CA)
  Receive Date: 20190716
  Receipt Date: 20190716
  Transmission Date: 20191004
  Serious: Yes (Other)
  Sender: FDA-Public Use
  Company Number: CA-AUROBINDO-AUR-APL-2019-039495

PATIENT

DRUGS (5)
  1. MOXIFLOXACIN. [Suspect]
     Active Substance: MOXIFLOXACIN
     Indication: EXTRAPULMONARY TUBERCULOSIS
     Dosage: UNK
     Route: 065
  2. CYCLOSERINE. [Suspect]
     Active Substance: CYCLOSERINE
     Indication: EXTRAPULMONARY TUBERCULOSIS
     Dosage: UNK
     Route: 065
  3. AMIKACIN. [Concomitant]
     Active Substance: AMIKACIN
     Indication: EXTRAPULMONARY TUBERCULOSIS
     Dosage: UNK
     Route: 065
  4. PARA-AMINOSALICYLIC ACID [Suspect]
     Active Substance: AMINOSALICYLIC ACID
     Indication: EXTRAPULMONARY TUBERCULOSIS
     Dosage: UNK
     Route: 065
  5. CLOFAZIMINE [Suspect]
     Active Substance: CLOFAZIMINE
     Indication: EXTRAPULMONARY TUBERCULOSIS
     Dosage: UNK
     Route: 065

REACTIONS (4)
  - Anaemia [Unknown]
  - Hypothyroidism [Unknown]
  - Iron deficiency [Unknown]
  - Drug tolerance [Unknown]
